FAERS Safety Report 9315699 (Version 2)
Quarter: 2013Q2

REPORT INFORMATION
  Report Type: Report from Study
  Country: IT (occurrence: IT)
  Receive Date: 20130529
  Receipt Date: 20130611
  Transmission Date: 20140414
  Serious: Yes (Other)
  Sender: FDA-Public Use
  Company Number: IT-PFIZER INC-2013162812

PATIENT
  Age: 73 Year
  Sex: Male

DRUGS (27)
  1. SUNITINIB MALATE [Suspect]
     Indication: METASTATIC RENAL CELL CARCINOMA
     Dosage: 50 MG, 1X/DAY
     Route: 048
     Dates: start: 20120131, end: 20130213
  2. IMA901 [Suspect]
     Indication: METASTATIC RENAL CELL CARCINOMA
     Dosage: 4.13 MG, AS NEEDED
     Route: 023
     Dates: start: 20120307, end: 20120622
  3. CYCLOPHOSPHAMIDE [Suspect]
     Indication: METASTATIC RENAL CELL CARCINOMA
     Dosage: 300 MG/M2, 1X/DAY
     Route: 042
     Dates: start: 20120305, end: 20120305
  4. GRANULOCYTE MACROPHAGE COLONY STIM FACTOR [Suspect]
     Indication: METASTATIC RENAL CELL CARCINOMA
     Dosage: 75 UG, AS NEEDED
     Route: 023
     Dates: start: 20120307, end: 20120622
  5. SUGUAN M [Concomitant]
     Indication: DIABETES MELLITUS
     Dosage: UNK
     Dates: start: 2006
  6. PRADIF [Concomitant]
     Indication: BENIGN PROSTATIC HYPERPLASIA
     Dosage: UNK
     Dates: start: 201109
  7. LANSOX [Concomitant]
     Indication: ABDOMINAL PAIN UPPER
     Dosage: UNK
     Dates: start: 20120220
  8. ZOFRAN [Concomitant]
     Indication: NAUSEA
     Dosage: UNK
     Dates: start: 20120323
  9. VASORETIC [Concomitant]
     Indication: HYPERTENSION
     Dosage: UNK
     Dates: start: 20120314
  10. IPERTEN [Concomitant]
     Indication: HYPERTENSION
     Dosage: UNK
     Dates: start: 20120421
  11. OPTIVE [Concomitant]
     Indication: CATARACT
     Dosage: UNK
     Dates: start: 20130124
  12. LASIX [Concomitant]
     Indication: HYPERTENSION
     Dosage: UNK
     Dates: start: 20130201
  13. LASIX [Concomitant]
     Indication: OEDEMA
     Dosage: UNK
     Dates: start: 20120417, end: 20120417
  14. EUTIROX [Concomitant]
     Indication: HYPOTHYROIDISM
     Dosage: UNK
     Dates: start: 20130218
  15. PRITOR [Concomitant]
     Indication: HYPERTENSION
     Dosage: UNK
     Dates: start: 2009, end: 20120413
  16. CAPOTEN [Concomitant]
     Indication: HYPERTENSION
     Dosage: UNK
     Dates: start: 20120417, end: 20120417
  17. ZIRTEC [Concomitant]
     Indication: ANGIOEDEMA
     Dosage: UNK
     Dates: start: 20120418, end: 20120428
  18. ZIRTEC [Concomitant]
     Indication: PROPHYLAXIS
  19. DELTACORTENE [Concomitant]
     Indication: PROPHYLAXIS
     Dosage: UNK
     Dates: start: 20120704, end: 20120705
  20. DELTACORTENE [Concomitant]
     Dosage: UNK
     Dates: start: 20121213, end: 20121214
  21. IMIDAZYL [Concomitant]
     Indication: LACRIMATION INCREASED
     Dosage: UNK
     Dates: start: 20120709, end: 201301
  22. ALLOPURINOLO [Concomitant]
     Indication: HYPERURICAEMIA
     Dosage: UNK
     Dates: start: 20120928, end: 20121120
  23. ALLOPURINOLO [Concomitant]
     Dosage: UNK
     Dates: start: 20121221, end: 20121228
  24. IMODIUM [Concomitant]
     Indication: DIARRHOEA
     Dosage: UNK
     Dates: start: 20121102, end: 20121104
  25. TRIMETON [Concomitant]
     Indication: PROPHYLAXIS
     Dosage: UNK
     Dates: start: 20121214, end: 20121214
  26. TOBRADEX [Concomitant]
     Indication: CATARACT
     Dosage: UNK
     Dates: start: 20130124, end: 20130131
  27. AUGMENTIN [Concomitant]
     Indication: PYREXIA
     Dosage: UNK
     Dates: start: 20130213, end: 20130218

REACTIONS (1)
  - Interstitial lung disease [Recovered/Resolved]
